FAERS Safety Report 14757230 (Version 1)
Quarter: 2018Q2

REPORT INFORMATION
  Report Type: Spontaneous
  Country: US (occurrence: US)
  Receive Date: 20180413
  Receipt Date: 20180413
  Transmission Date: 20180711
  Serious: Yes (Hospitalization, Other)
  Sender: FDA-Public Use
  Company Number: US-SA-2018SA106680

PATIENT
  Age: 54 Year
  Sex: Female

DRUGS (1)
  1. FABRAZYME [Suspect]
     Active Substance: AGALSIDASE BETA
     Route: 041
     Dates: start: 20160929

REACTIONS (4)
  - Abdominal discomfort [Unknown]
  - Loss of consciousness [Unknown]
  - Pain [Unknown]
  - Melaena [Unknown]

NARRATIVE: CASE EVENT DATE: 2018
